FAERS Safety Report 18270907 (Version 2)
Quarter: 2020Q3

REPORT INFORMATION
  Report Type: Spontaneous
  Country: US (occurrence: US)
  Receive Date: 20200916
  Receipt Date: 20200930
  Transmission Date: 20201103
  Serious: Yes (Disabling, Other)
  Sender: FDA-Public Use
  Company Number: US-SUN PHARMACEUTICAL INDUSTRIES LTD-2020R1-260793

PATIENT
  Age: 54 Year

DRUGS (1)
  1. CLINDAMYCIN. [Suspect]
     Active Substance: CLINDAMYCIN
     Indication: SUTURE RELATED COMPLICATION
     Dosage: 300 MILLIGRAM, TID
     Route: 065
     Dates: start: 2020, end: 2020

REACTIONS (9)
  - Disability [Not Recovered/Not Resolved]
  - Dysphagia [Recovering/Resolving]
  - Burning sensation [Recovering/Resolving]
  - Hypokinesia [Recovering/Resolving]
  - Pruritus [Recovering/Resolving]
  - Pain in extremity [Recovering/Resolving]
  - Oropharyngeal pain [Recovering/Resolving]
  - Swelling [Recovering/Resolving]
  - Pain [Recovering/Resolving]

NARRATIVE: CASE EVENT DATE: 2020
